FAERS Safety Report 22149327 (Version 4)
Quarter: 2023Q2

REPORT INFORMATION
  Report Type: Spontaneous
  Country: US (occurrence: US)
  Receive Date: 20230329
  Receipt Date: 20230619
  Transmission Date: 20230721
  Serious: No
  Sender: FDA-Public Use
  Company Number: US-SA-SAC20230328000609

PATIENT
  Age: 32 Year
  Sex: Female
  Weight: 92 kg

DRUGS (4)
  1. DUPIXENT [Suspect]
     Active Substance: DUPILUMAB
     Indication: Nasal polyps
     Dosage: 300 MG, QOW
     Route: 058
     Dates: start: 20230125, end: 20230308
  2. BUDESONIDE [Concomitant]
     Active Substance: BUDESONIDE
     Indication: Nasal polyps
     Dosage: 0.5 MG DAILY
  3. FLOVENT [Concomitant]
     Active Substance: FLUTICASONE PROPIONATE
     Indication: Asthma
     Dosage: 220MG
     Route: 055
  4. ALBUTEROL [Concomitant]
     Active Substance: ALBUTEROL
     Dosage: 180 MG AS NEEDED
     Route: 055

REACTIONS (6)
  - Injection site discomfort [Unknown]
  - Injection site exfoliation [Recovered/Resolved]
  - Injection site exfoliation [Unknown]
  - Injection site reaction [Recovered/Resolved]
  - Injection site erythema [Recovered/Resolved]
  - Injection site pruritus [Unknown]

NARRATIVE: CASE EVENT DATE: 20230101
